FAERS Safety Report 23940178 (Version 1)
Quarter: 2024Q2

REPORT INFORMATION
  Report Type: Spontaneous
  Country: US (occurrence: US)
  Receive Date: 20240605
  Receipt Date: 20240605
  Transmission Date: 20240716
  Serious: Yes (Death, Other)
  Sender: FDA-Public Use
  Company Number: US-LUPIN PHARMACEUTICALS INC.-2024-04499

PATIENT
  Age: 1 Year
  Sex: Male

DRUGS (4)
  1. ATOVAQUONE [Suspect]
     Active Substance: ATOVAQUONE
     Indication: Acute myeloid leukaemia
     Dosage: UNK
     Route: 065
  2. CYTARABINE [Suspect]
     Active Substance: CYTARABINE
     Indication: Acute myeloid leukaemia
     Dosage: UNK
     Route: 065
  3. DAUNORUBICIN HYDROCHLORIDE [Suspect]
     Active Substance: DAUNORUBICIN HYDROCHLORIDE
  4. ETOPOSIDE [Suspect]
     Active Substance: ETOPOSIDE

REACTIONS (2)
  - Acute myeloid leukaemia refractory [Fatal]
  - Off label use [Unknown]
